FAERS Safety Report 20320704 (Version 1)
Quarter: 2022Q1

REPORT INFORMATION
  Report Type: Spontaneous
  Country: US (occurrence: US)
  Receive Date: 20220111
  Receipt Date: 20220111
  Transmission Date: 20220423
  Serious: Yes (Hospitalization)
  Sender: FDA-Public Use
  Company Number: US-NOVARTISPH-NVSC2022US002928

PATIENT
  Age: 41 Year
  Sex: Female

DRUGS (4)
  1. RANITIDINE [Suspect]
     Active Substance: RANITIDINE
     Indication: Dyspepsia
     Dosage: 900 MG, TID
     Route: 048
     Dates: start: 201001, end: 201904
  2. RANITIDINE [Suspect]
     Active Substance: RANITIDINE
     Indication: Abdominal discomfort
  3. RANITIDINE [Suspect]
     Active Substance: RANITIDINE
     Indication: Dyspepsia
     Dosage: 900 MG, TID
     Route: 048
     Dates: start: 201001, end: 201904
  4. RANITIDINE [Suspect]
     Active Substance: RANITIDINE
     Indication: Abdominal discomfort

REACTIONS (10)
  - Colorectal cancer [Unknown]
  - Lung carcinoma cell type unspecified stage IV [Unknown]
  - Gastric cancer [Unknown]
  - Injury [Unknown]
  - Muscle spasms [Unknown]
  - Gait disturbance [Unknown]
  - Cardiac disorder [Unknown]
  - Liver disorder [Unknown]
  - Lung disorder [Unknown]
  - Incorrect dose administered [Unknown]

NARRATIVE: CASE EVENT DATE: 20100101
